FAERS Safety Report 7592840-5 (Version None)
Quarter: 2011Q3

REPORT INFORMATION
  Report Type: 
  Country: None (occurrence: None)
  Receive Date: 20110706
  Receipt Date: 20110702
  Transmission Date: 20111222
  Serious: No
  Sender: FDA-Public Use
  Company Number: US-PFIZER INC-2011148071

PATIENT
  Sex: Female
  Weight: 59 kg

DRUGS (2)
  1. PREMARIN [Suspect]
     Indication: OFF LABEL USE
     Dosage: UNK, 3X/WEEK
     Route: 067
     Dates: end: 20110101
  2. PREMARIN [Suspect]
     Indication: URINARY INCONTINENCE

REACTIONS (5)
  - VULVOVAGINAL PRURITUS [None]
  - VULVOVAGINAL BURNING SENSATION [None]
  - DRUG INEFFECTIVE [None]
  - VULVOVAGINAL PAIN [None]
  - VAGINAL HAEMORRHAGE [None]
